FAERS Safety Report 12306299 (Version 3)
Quarter: 2016Q3

REPORT INFORMATION
  Report Type: Spontaneous
  Country: US (occurrence: US)
  Receive Date: 20160426
  Receipt Date: 20160825
  Transmission Date: 20161109
  Serious: Yes (Other)
  Sender: FDA-Public Use
  Company Number: US-JNJFOC-20160419558

PATIENT
  Age: 48 Year
  Sex: Female

DRUGS (17)
  1. CYMBALTA [Concomitant]
     Active Substance: DULOXETINE HYDROCHLORIDE
     Indication: PAIN
     Route: 048
     Dates: start: 2011
  2. DURAGESIC [Suspect]
     Active Substance: FENTANYL
     Indication: PAIN
     Route: 062
  3. DURAGESIC [Suspect]
     Active Substance: FENTANYL
     Indication: MUSCLE DISORDER
     Route: 062
  4. DURAGESIC [Suspect]
     Active Substance: FENTANYL
     Indication: MYALGIA
     Route: 062
     Dates: start: 201603
  5. FENTANYL TRANSDERMAL SYSTEM [Suspect]
     Active Substance: FENTANYL
     Indication: BONE PAIN
     Dosage: 75 UG/HR AND 12.5 UG/HR
     Route: 062
     Dates: start: 201603
  6. DURAGESIC [Suspect]
     Active Substance: FENTANYL
     Indication: PAIN
     Route: 062
  7. DURAGESIC [Suspect]
     Active Substance: FENTANYL
     Indication: BONE DISORDER
     Route: 062
  8. DURAGESIC [Suspect]
     Active Substance: FENTANYL
     Indication: MUSCLE DISORDER
     Route: 062
  9. DURAGESIC [Suspect]
     Active Substance: FENTANYL
     Indication: BONE DISORDER
     Route: 062
  10. FENTANYL TRANSDERMAL SYSTEM [Suspect]
     Active Substance: FENTANYL
     Indication: BONE PAIN
     Route: 062
     Dates: start: 201603, end: 201603
  11. FENTANYL TRANSDERMAL SYSTEM [Suspect]
     Active Substance: FENTANYL
     Indication: MYALGIA
     Dosage: 75 UG/HR AND 12.5 UG/HR
     Route: 062
     Dates: start: 201603
  12. FENTANYL TRANSDERMAL SYSTEM [Suspect]
     Active Substance: FENTANYL
     Indication: MYALGIA
     Route: 062
     Dates: start: 201603, end: 201603
  13. DURAGESIC [Suspect]
     Active Substance: FENTANYL
     Indication: PAIN
     Route: 062
  14. DURAGESIC [Suspect]
     Active Substance: FENTANYL
     Indication: MUSCLE DISORDER
     Route: 062
  15. DURAGESIC [Suspect]
     Active Substance: FENTANYL
     Indication: BONE PAIN
     Route: 062
     Dates: start: 201603
  16. DURAGESIC [Suspect]
     Active Substance: FENTANYL
     Indication: BONE DISORDER
     Route: 062
  17. PERCOCET [Concomitant]
     Active Substance: ACETAMINOPHEN\OXYCODONE HYDROCHLORIDE
     Indication: PAIN
     Route: 048

REACTIONS (10)
  - Breakthrough pain [Unknown]
  - Drug ineffective [Unknown]
  - Abasia [Unknown]
  - Pruritus [Unknown]
  - Scab [Unknown]
  - Pain of skin [Unknown]
  - Swelling [Unknown]
  - Blister [Unknown]
  - Temperature intolerance [Unknown]
  - Pain [Unknown]

NARRATIVE: CASE EVENT DATE: 201603
